FAERS Safety Report 4515062-0 (Version None)
Quarter: 2004Q4

REPORT INFORMATION
  Report Type: 
  Country: None (occurrence: None)
  Receive Date: 20041201
  Receipt Date: 20041124
  Transmission Date: 20050328
  Serious: Yes (Hospitalization)
  Sender: FDA-Public Use
  Company Number: SE-MERCK-0411SWE00048

PATIENT
  Age: 51 Year
  Sex: Female

DRUGS (2)
  1. VIOXX [Suspect]
     Indication: OSTEOARTHRITIS
     Route: 048
     Dates: start: 20020920, end: 20030101
  2. ESTROGENS, CONJUGATED [Concomitant]
     Route: 065

REACTIONS (3)
  - ARRHYTHMIA [None]
  - CHEST PAIN [None]
  - GENERAL PHYSICAL HEALTH DETERIORATION [None]
